FAERS Safety Report 8094068-1 (Version None)
Quarter: 2012Q1

REPORT INFORMATION
  Report Type: 
  Country: None (occurrence: None)
  Receive Date: 20120131
  Receipt Date: 20120119
  Transmission Date: 20120608
  Serious: Yes (Other)
  Sender: FDA-Public Use
  Company Number: US-BRISTOL-MYERS SQUIBB COMPANY-16357345

PATIENT
  Age: 48 Year
  Sex: Male
  Weight: 91 kg

DRUGS (2)
  1. ABILIFY [Suspect]
     Indication: PARANOIA
  2. ABILIFY [Suspect]
     Indication: ENDOCRINE TEST ABNORMAL

REACTIONS (5)
  - PARALYSIS [None]
  - MUSCULOSKELETAL STIFFNESS [None]
  - MUSCLE SPASMS [None]
  - HEADACHE [None]
  - BALANCE DISORDER [None]
